FAERS Safety Report 13610833 (Version 1)
Quarter: 2017Q2

REPORT INFORMATION
  Report Type: Spontaneous
  Country: CL (occurrence: CL)
  Receive Date: 20170605
  Receipt Date: 20170605
  Transmission Date: 20170830
  Serious: Yes (Hospitalization, Other)
  Sender: FDA-Public Use
  Company Number: PHHY2017CL078815

PATIENT
  Age: 15 Year
  Sex: Male
  Weight: 56.2 kg

DRUGS (6)
  1. TACROLIMUS. [Concomitant]
     Active Substance: TACROLIMUS
     Indication: PRODUCT USED FOR UNKNOWN INDICATION
     Dosage: UNK
     Route: 065
  2. PREDNISONE. [Concomitant]
     Active Substance: PREDNISONE
     Indication: PRODUCT USED FOR UNKNOWN INDICATION
     Dosage: 5 MG, QD
     Route: 065
  3. TACROLIMUS. [Concomitant]
     Active Substance: TACROLIMUS
     Dosage: 2 MG, Q12H
     Route: 065
  4. BASILIXIMAB [Concomitant]
     Active Substance: BASILIXIMAB
     Indication: PRODUCT USED FOR UNKNOWN INDICATION
     Dosage: UNK UNK, BID
     Route: 065
  5. RAPAMYCIN [Concomitant]
     Active Substance: SIROLIMUS
     Indication: PRODUCT USED FOR UNKNOWN INDICATION
     Route: 065
  6. MYFORTIC [Suspect]
     Active Substance: MYCOPHENOLATE SODIUM
     Indication: RENAL TRANSPLANT
     Dosage: 250 MG, Q12H
     Route: 065
     Dates: end: 201009

REACTIONS (12)
  - Creatinine renal clearance decreased [Unknown]
  - Proteinuria [Unknown]
  - Blood urea increased [Unknown]
  - Immunosuppressant drug level increased [Unknown]
  - Renal tubular necrosis [Recovering/Resolving]
  - Blood creatinine increased [Unknown]
  - Nephropathy toxic [Unknown]
  - Kidney fibrosis [Unknown]
  - Toxocariasis [Unknown]
  - Chronic allograft nephropathy [Unknown]
  - Cytomegalovirus infection [Unknown]
  - Mesangioproliferative glomerulonephritis [Unknown]

NARRATIVE: CASE EVENT DATE: 2010
